FAERS Safety Report 5325356-7 (Version None)
Quarter: 2007Q2

REPORT INFORMATION
  Report Type: 
  Country: None (occurrence: None)
  Receive Date: 20070509
  Receipt Date: 20070423
  Transmission Date: 20071010
  Serious: Yes (Death)
  Sender: FDA-Public Use
  Company Number: 2007RR-07184

PATIENT
  Age: 63 Year
  Sex: Male

DRUGS (1)
  1. LISINOPRIL [Suspect]

REACTIONS (1)
  - BRONCHOPNEUMONIA [None]
